FAERS Safety Report 10217128 (Version 1)
Quarter: 2014Q2

REPORT INFORMATION
  Report Type: Spontaneous
  Country: AU (occurrence: AU)
  Receive Date: 20140604
  Receipt Date: 20140604
  Transmission Date: 20141212
  Serious: Yes (Other)
  Sender: FDA-Public Use
  Company Number: AU-BRISTOL-MYERS SQUIBB COMPANY-20847398

PATIENT
  Age: 27 Year
  Sex: Female

DRUGS (2)
  1. YERVOY [Suspect]
  2. METHOTREXATE [Suspect]

REACTIONS (1)
  - Ectopic pregnancy [Unknown]
